FAERS Safety Report 5558299-4 (Version None)
Quarter: 2007Q4

REPORT INFORMATION
  Report Type: 
  Country: None (occurrence: None)
  Receive Date: 20071214
  Receipt Date: 20071207
  Transmission Date: 20080405
  Serious: Yes (Other)
  Sender: FDA-Public Use
  Company Number: AT-GILEAD-2007-0014102

PATIENT
  Sex: Male
  Weight: 78 kg

DRUGS (6)
  1. HEPSERA [Suspect]
     Indication: HEPATITIS B
     Route: 048
     Dates: start: 20070601, end: 20070901
  2. PANTOPRAZOLE SODIUM [Concomitant]
  3. KONAKION [Concomitant]
  4. SPIROBENE [Concomitant]
  5. ENALAPRIL MALEATE AND HYDROCHLOROTHIAZIDE [Concomitant]
     Dates: start: 20070901
  6. INSULIN [Concomitant]
     Indication: TYPE 2 DIABETES MELLITUS

REACTIONS (3)
  - HYPERTENSION [None]
  - RENAL FAILURE ACUTE [None]
  - RENAL TUBULAR NECROSIS [None]
